FAERS Safety Report 8586915-1 (Version None)
Quarter: 2012Q3

REPORT INFORMATION
  Report Type: 
  Country: None (occurrence: None)
  Receive Date: 20120810
  Receipt Date: 20120806
  Transmission Date: 20120928
  Serious: Yes (Other)
  Sender: FDA-Public Use
  Company Number: CHPA2012US017275

PATIENT
  Age: 79 Year
  Sex: Female

DRUGS (3)
  1. VOLTAREN [Suspect]
     Indication: ARTHRALGIA
     Dosage: UNK, UNK
  2. HYDROCODONE [Concomitant]
     Indication: ARTHRALGIA
  3. PLAVIX [Concomitant]
     Indication: ANTICOAGULANT THERAPY

REACTIONS (3)
  - HAEMATOCHEZIA [None]
  - OFF LABEL USE [None]
  - GAIT DISTURBANCE [None]
